FAERS Safety Report 16843615 (Version 1)
Quarter: 2019Q3

REPORT INFORMATION
  Report Type: Spontaneous
  Country: IT (occurrence: IT)
  Receive Date: 20190924
  Receipt Date: 20190924
  Transmission Date: 20191005
  Serious: Yes (Hospitalization)
  Sender: FDA-Public Use
  Company Number: IT-ACCORD-155139

PATIENT
  Age: 45 Year
  Sex: Male

DRUGS (7)
  1. PARACETAMOL [Concomitant]
     Active Substance: ACETAMINOPHEN
     Indication: PYREXIA
     Route: 041
     Dates: start: 20190510, end: 20190510
  2. TRUXIMA [Suspect]
     Active Substance: RITUXIMAB-ABBS
     Indication: B-CELL LYMPHOMA
     Dosage: STRENGTH: 100 MG, RECEIVED TILL 10-MAY-2019
     Route: 041
     Dates: start: 20190510
  3. TRIMETON [Concomitant]
     Active Substance: CHLORPHENIRAMINE MALEATE
     Route: 042
  4. MYCOSTATIN [Concomitant]
     Active Substance: NYSTATIN
     Dosage: STRENGTH: 100,000 IU /ML
     Route: 048
  5. BENDAMUSTINE ACCORD [Suspect]
     Active Substance: BENDAMUSTINE
     Indication: B-CELL LYMPHOMA
     Dosage: STRENGTH: 2.5 MG / ML, POWDER FOR CONCENTRATE FOR PERFUSION
     Route: 041
     Dates: start: 20190510, end: 20190510
  6. SOLU-MEDROL [Concomitant]
     Active Substance: METHYLPREDNISOLONE SODIUM SUCCINATE
     Dates: start: 20190510, end: 20190510
  7. LANSOPRAZOLE. [Concomitant]
     Active Substance: LANSOPRAZOLE
     Route: 048

REACTIONS (4)
  - Dysphagia [Recovered/Resolved]
  - Urticaria [Recovered/Resolved]
  - Arthralgia [Recovered/Resolved]
  - Pyrexia [Recovered/Resolved]

NARRATIVE: CASE EVENT DATE: 20190523
